FAERS Safety Report 15500056 (Version 2)
Quarter: 2018Q4

REPORT INFORMATION
  Report Type: Spontaneous
  Country: GB (occurrence: GB)
  Receive Date: 20181015
  Receipt Date: 20181123
  Transmission Date: 20190205
  Serious: Yes (Hospitalization, Other)
  Sender: FDA-Public Use
  Company Number: PHHY2018GB123956

PATIENT
  Sex: Female

DRUGS (5)
  1. VOTUBIA [Suspect]
     Active Substance: EVEROLIMUS
     Dosage: 14 MG, UNK
     Route: 065
  2. VOTUBIA [Suspect]
     Active Substance: EVEROLIMUS
     Indication: SEIZURE
     Dosage: UNK
     Route: 065
  3. VOTUBIA [Suspect]
     Active Substance: EVEROLIMUS
     Dosage: 11 MG, UNK
     Route: 065
  4. VOTUBIA [Suspect]
     Active Substance: EVEROLIMUS
     Dosage: 8 MG, UNK
     Route: 065
  5. VOTUBIA [Suspect]
     Active Substance: EVEROLIMUS
     Dosage: 13 MG, UNK
     Route: 065

REACTIONS (6)
  - Seizure [Unknown]
  - Concomitant disease aggravated [Unknown]
  - Rash [Unknown]
  - Respiratory disorder [Unknown]
  - Seizure cluster [Unknown]
  - Infection [Unknown]
